FAERS Safety Report 9842757 (Version 2)
Quarter: 2014Q1

REPORT INFORMATION
  Report Type: Spontaneous
  Country: US (occurrence: None)
  Receive Date: 20131223
  Receipt Date: 20140228
  Transmission Date: 20141002
  Serious: No
  Sender: FDA-Public Use
  Company Number: 222198LEO

PATIENT
  Sex: Male

DRUGS (1)
  1. PICATO [Suspect]
     Indication: PRODUCT USED FOR UNKNOWN INDICATION
     Dosage: 1 IN 1 D, TOPICAL
     Route: 061
     Dates: start: 20130523, end: 20130524

REACTIONS (5)
  - Eye swelling [None]
  - Application site erythema [None]
  - Application site pain [None]
  - Drug administration error [None]
  - Inappropriate schedule of drug administration [None]
